FAERS Safety Report 6753211-4 (Version None)
Quarter: 2010Q2

REPORT INFORMATION
  Report Type: 
  Country: None (occurrence: None)
  Receive Date: 20100603
  Receipt Date: 20100524
  Transmission Date: 20101027
  Serious: Yes (Hospitalization)
  Sender: FDA-Public Use
  Company Number: KR-PFIZER INC-2006102267

PATIENT
  Age: 38 Year
  Sex: Male
  Weight: 60 kg

DRUGS (4)
  1. SUNITINIB MALATE [Suspect]
     Indication: GASTROINTESTINAL STROMAL TUMOUR
     Dosage: 37.5 MG, 1X/DAY
     Route: 048
     Dates: start: 20060204
  2. TRAMADOL HCL [Concomitant]
     Route: 048
     Dates: start: 20060730, end: 20060805
  3. AMLODIPINE [Concomitant]
     Route: 048
     Dates: start: 20060526
  4. MAGNESIUM OXIDE [Concomitant]
     Route: 048
     Dates: start: 20060613, end: 20060814

REACTIONS (1)
  - RENAL FAILURE ACUTE [None]
